FAERS Safety Report 9221902 (Version 1)
Quarter: 2013Q2

REPORT INFORMATION
  Report Type: Spontaneous
  Country: US (occurrence: None)
  Receive Date: 20130410
  Receipt Date: 20130410
  Transmission Date: 20140414
  Serious: Yes (Hospitalization)
  Sender: FDA-Public Use
  Company Number: None

PATIENT
  Age: 88 Year
  Sex: Male
  Weight: 77.4 kg

DRUGS (19)
  1. COUMADIN [Suspect]
     Indication: ATRIAL FIBRILLATION
     Dosage: PO?CHRONIC
     Route: 048
  2. LASIX [Concomitant]
  3. VIT C [Concomitant]
  4. ATORVASTATIN [Concomitant]
  5. CA+D [Concomitant]
  6. CERTIRIZINE [Concomitant]
  7. PROSCAR [Concomitant]
  8. GABAPENTIN [Concomitant]
  9. MUCINEX [Concomitant]
  10. LEVOTHYROXINE [Concomitant]
  11. SKELAXIN [Concomitant]
  12. OMEPRAZOLE [Concomitant]
  13. KCL [Concomitant]
  14. RANOLAZINE [Concomitant]
  15. FLOMAX [Concomitant]
  16. PSYLLIUM [Concomitant]
  17. MVI [Concomitant]
  18. DOCUSATE [Concomitant]
  19. OSTEO BI FLEX [Concomitant]

REACTIONS (10)
  - Acute respiratory failure [None]
  - Haemorrhagic anaemia [None]
  - Ecchymosis [None]
  - Dyspnoea [None]
  - Tachycardia [None]
  - Cardiac failure congestive [None]
  - Acute myocardial infarction [None]
  - Iron deficiency anaemia [None]
  - Pneumonia [None]
  - Sepsis [None]
